FAERS Safety Report 11569819 (Version 1)
Quarter: 2015Q3

REPORT INFORMATION
  Report Type: Spontaneous
  Country: DE (occurrence: DE)
  Receive Date: 20150929
  Receipt Date: 20150929
  Transmission Date: 20151125
  Serious: Yes (Other)
  Sender: FDA-Public Use
  Company Number: DE-SUN PHARMACEUTICAL INDUSTRIES LTD-2015RR-103771

PATIENT

DRUGS (6)
  1. CITALOPRAM [Suspect]
     Active Substance: CITALOPRAM HYDROBROMIDE
     Indication: DEPRESSION
     Dosage: 20 MG, QD TILL WEEK 16, 15 MG/DAY TILL WEEK 27 AND THEN 10 MG/DAY
     Route: 064
     Dates: start: 20140902, end: 20150611
  2. AMPICILLIN [Suspect]
     Active Substance: AMPICILLIN
     Indication: STREPTOCOCCUS TEST POSITIVE
     Dosage: DURING GESTATIONAL WEEK 40.2
     Route: 064
  3. SOBELIN [Suspect]
     Active Substance: CLINDAMYCIN HYDROCHLORIDE
     Indication: VAGINAL PH INCREASED
     Dosage: DURING GESTATIONAL WEEK 40
     Route: 064
  4. FOLSAURE [Concomitant]
     Active Substance: FOLIC ACID
     Indication: PROPHYLAXIS OF NEURAL TUBE DEFECT
     Dosage: UNK
     Route: 064
  5. CEFUROXIM [Concomitant]
     Active Substance: CEFUROXIME
     Indication: URINARY TRACT INFECTION BACTERIAL
     Dosage: 500 MG, BID, DURING GESTATIONAL WEEK 36.1 - 37.3
     Route: 064
     Dates: start: 20150513, end: 20150522
  6. AMPICILLIN [Concomitant]
     Active Substance: AMPICILLIN
     Indication: LISTERIOSIS
     Dosage: 1000 MG, TID, DURING GESTATIONAL WEEK 29-30.5
     Route: 064
     Dates: start: 20150324, end: 20150405

REACTIONS (2)
  - Congenital lymphoedema [Unknown]
  - Spinal muscular atrophy [Not Recovered/Not Resolved]
